FAERS Safety Report 10228402 (Version 1)
Quarter: 2014Q2

REPORT INFORMATION
  Report Type: Spontaneous
  Country: US (occurrence: US)
  Receive Date: 20140610
  Receipt Date: 20140610
  Transmission Date: 20141212
  Serious: Yes (Other)
  Sender: FDA-Public Use
  Company Number: PHHY2014US070239

PATIENT
  Age: 54 Year
  Sex: Female

DRUGS (5)
  1. ZOLEDRONATE [Suspect]
  2. VINORELBINE [Suspect]
  3. TRASTUZUMAB [Suspect]
     Indication: LYMPHADENOPATHY
  4. PACLITAXEL [Suspect]
  5. GEMCITABINE [Suspect]

REACTIONS (8)
  - Osteonecrosis [Unknown]
  - Myalgia [Unknown]
  - Lymphadenopathy [Unknown]
  - Malignant neoplasm progression [Unknown]
  - Colitis [Unknown]
  - Abdominal pain [Unknown]
  - Diarrhoea haemorrhagic [Unknown]
  - Colitis ulcerative [Unknown]
